FAERS Safety Report 8993853 (Version 1)
Quarter: 2013Q1

REPORT INFORMATION
  Report Type: Spontaneous
  Country: US (occurrence: US)
  Receive Date: 20130102
  Receipt Date: 20130102
  Transmission Date: 20140127
  Serious: No
  Sender: FDA-Public Use
  Company Number: US-AMGEN-USASP2012081212

PATIENT
  Age: 62 Year
  Sex: Female
  Weight: 74.5 kg

DRUGS (5)
  1. ENBREL [Suspect]
     Indication: RHEUMATOID ARTHRITIS
     Dosage: 50 MG, QWK
     Route: 058
     Dates: start: 20120827
  2. VITAMIN D3 [Concomitant]
     Indication: VITAMIN D DEFICIENCY
     Dosage: 50000 UNIT, QWK
     Route: 048
     Dates: start: 20121222
  3. CALCIUM VITAMIN D [Concomitant]
     Indication: OSTEOPENIA
     Dosage: CALCIUM 600 MG + VITAMIN 400 UNITS TWICE DAILY
     Route: 048
     Dates: start: 20120822
  4. ACETAMINOPHEN [Concomitant]
     Indication: RHEUMATOID ARTHRITIS
     Dosage: 500 MG, TID AS NEEDS
  5. PREDNISONE [Concomitant]
     Indication: RHEUMATOID ARTHRITIS
     Dosage: 5 MG, QD
     Dates: start: 2010

REACTIONS (11)
  - Pharyngeal oedema [Recovering/Resolving]
  - Eye irritation [Recovering/Resolving]
  - Ear pruritus [Recovering/Resolving]
  - Throat irritation [Recovering/Resolving]
  - Nasal congestion [Recovering/Resolving]
  - Sinus headache [Recovering/Resolving]
  - Nausea [Recovering/Resolving]
  - Malaise [Recovering/Resolving]
  - Arthralgia [Unknown]
  - Productive cough [Recovering/Resolving]
  - Nasopharyngitis [Not Recovered/Not Resolved]
